FAERS Safety Report 12167401 (Version 1)
Quarter: 2016Q1

REPORT INFORMATION
  Report Type: Spontaneous
  Country: US (occurrence: US)
  Receive Date: 20160310
  Receipt Date: 20160310
  Transmission Date: 20160526
  Serious: No
  Sender: FDA-Public Use
  Company Number: US-PFIZER INC-2016088604

PATIENT
  Age: 84 Year
  Sex: Male

DRUGS (1)
  1. LIPITOR [Suspect]
     Active Substance: ATORVASTATIN CALCIUM
     Dosage: UNK
     Dates: end: 20151223

REACTIONS (5)
  - Pain [Recovering/Resolving]
  - Gait disturbance [Unknown]
  - Muscle disorder [Unknown]
  - Arthropathy [Unknown]
  - Fluid retention [Unknown]
